FAERS Safety Report 18074753 (Version 1)
Quarter: 2020Q3

REPORT INFORMATION
  Report Type: Spontaneous
  Country: US (occurrence: US)
  Receive Date: 20200727
  Receipt Date: 20200727
  Transmission Date: 20201103
  Serious: No
  Sender: FDA-Public Use
  Company Number: US-ABBVIE-19K-163-2975275-00

PATIENT
  Sex: Female

DRUGS (3)
  1. NP THYROID [Suspect]
     Active Substance: LEVOTHYROXINE\LIOTHYRONINE
     Indication: HYPOTHYROIDISM
     Dosage: 90 MG TABLET IN MORNING 30 MG TABLET IN AFTERNOON
     Route: 048
     Dates: start: 2015
  2. SYNTHROID [Suspect]
     Active Substance: LEVOTHYROXINE SODIUM
     Indication: HYPOTHYROIDISM
     Route: 048
     Dates: start: 1991, end: 2015
  3. NP THYROID [Suspect]
     Active Substance: LEVOTHYROXINE\LIOTHYRONINE
     Dosage: 90 MG TABLET MORNING TWO 30 MG AFTERNOON FOR MON THURS AND 90 MG AFTERNOON FRIDAY SUN
     Route: 048
     Dates: start: 2019

REACTIONS (18)
  - Myalgia [Recovered/Resolved]
  - Pain [Recovered/Resolved]
  - Feeling cold [Not Recovered/Not Resolved]
  - Hypothyroidism [Not Recovered/Not Resolved]
  - Peripheral swelling [Recovered/Resolved]
  - Swelling face [Recovered/Resolved]
  - Product taste abnormal [Not Recovered/Not Resolved]
  - Arthralgia [Recovered/Resolved]
  - Product odour abnormal [Not Recovered/Not Resolved]
  - Product physical consistency issue [Not Recovered/Not Resolved]
  - Alopecia [Not Recovered/Not Resolved]
  - Blood cholesterol increased [Recovered/Resolved]
  - Product solubility abnormal [Not Recovered/Not Resolved]
  - Blood pressure increased [Recovered/Resolved]
  - General symptom [Recovered/Resolved]
  - Pain [Not Recovered/Not Resolved]
  - Drug ineffective [Not Recovered/Not Resolved]
  - Swelling face [Not Recovered/Not Resolved]

NARRATIVE: CASE EVENT DATE: 2015
